FAERS Safety Report 25212368 (Version 1)
Quarter: 2025Q2

REPORT INFORMATION
  Report Type: Spontaneous
  Country: US (occurrence: US)
  Receive Date: 20250418
  Receipt Date: 20250418
  Transmission Date: 20250717
  Serious: No
  Sender: ROCHE
  Company Number: US-ROCHE-10000257082

PATIENT
  Age: 52 Year
  Sex: Male
  Weight: 99.79 kg

DRUGS (2)
  1. GAZYVA [Suspect]
     Active Substance: OBINUTUZUMAB
     Indication: Chronic lymphocytic leukaemia
     Route: 042
     Dates: start: 20250408
  2. GAZYVA [Suspect]
     Active Substance: OBINUTUZUMAB
     Route: 042
     Dates: start: 20250407

REACTIONS (2)
  - Platelet count abnormal [Not Recovered/Not Resolved]
  - Neutrophil count abnormal [Not Recovered/Not Resolved]

NARRATIVE: CASE EVENT DATE: 20250407
